FAERS Safety Report 6199154-9 (Version None)
Quarter: 2009Q2

REPORT INFORMATION
  Report Type: 
  Country: None (occurrence: None)
  Receive Date: 20090522
  Receipt Date: 20090209
  Transmission Date: 20091009
  Serious: No
  Sender: FDA-Public Use
  Company Number: A0768505A

PATIENT
  Sex: Female

DRUGS (1)
  1. VERAMYST [Suspect]
     Indication: SINUSITIS
     Route: 045

REACTIONS (7)
  - EYE PRURITUS [None]
  - HYPERSENSITIVITY [None]
  - MUSCULOSKELETAL CHEST PAIN [None]
  - NASAL DISCOMFORT [None]
  - PRURITUS [None]
  - SINUS OPERATION [None]
  - SNEEZING [None]
